FAERS Safety Report 10846878 (Version 1)
Quarter: 2015Q1

REPORT INFORMATION
  Report Type: Spontaneous
  Country: US (occurrence: US)
  Receive Date: 20150220
  Receipt Date: 20150220
  Transmission Date: 20150721
  Serious: Yes (Other)
  Sender: FDA-Public Use
  Company Number: US-BAYER-2015-022808

PATIENT
  Sex: Female

DRUGS (1)
  1. ALKA-SELTZER PLUS COLD FORMULA [Suspect]
     Active Substance: ASPIRIN\CHLORPHENIRAMINE MALEATE\PHENYLEPHRINE BITARTRATE
     Dosage: UNK

REACTIONS (7)
  - Lip swelling [Unknown]
  - Drug hypersensitivity [Unknown]
  - Pruritus [Unknown]
  - Swelling face [Unknown]
  - Urticaria [Unknown]
  - Dyspnoea [Unknown]
  - Swollen tongue [Unknown]
